FAERS Safety Report 13120997 (Version 1)
Quarter: 2017Q1

REPORT INFORMATION
  Report Type: Spontaneous
  Country: US (occurrence: US)
  Receive Date: 20170113
  Receipt Date: 20170113
  Transmission Date: 20170428
  Serious: Yes (Hospitalization)
  Sender: FDA-Public Use
  Company Number: None

PATIENT
  Age: 66 Year
  Sex: Male

DRUGS (1)
  1. CANAGLIFLOZIN [Suspect]
     Active Substance: CANAGLIFLOZIN
     Indication: DIABETES MELLITUS
     Route: 048

REACTIONS (6)
  - Acute kidney injury [None]
  - Hypotension [None]
  - Sepsis [None]
  - Diabetic ketoacidosis [None]
  - Metabolic acidosis [None]
  - Pneumonia [None]

NARRATIVE: CASE EVENT DATE: 20160719
